FAERS Safety Report 4353027-2 (Version None)
Quarter: 2004Q2

REPORT INFORMATION
  Report Type: 
  Country: None (occurrence: None)
  Receive Date: 20040430
  Receipt Date: 20040324
  Transmission Date: 20050107
  Serious: No
  Sender: FDA-Public Use
  Company Number: 205480

PATIENT
  Sex: Female

DRUGS (1)
  1. XOLAIR (OMALIZUMAB) PWDR + SOLVENT, INJECTION SITE, 150 MG [Suspect]
     Dosage: SUBCUTANEOUS
     Route: 058

REACTIONS (1)
  - WEIGHT INCREASED [None]
